FAERS Safety Report 17573228 (Version 1)
Quarter: 2020Q1

REPORT INFORMATION
  Report Type: Spontaneous
  Country: DK (occurrence: DK)
  Receive Date: 20200323
  Receipt Date: 20200323
  Transmission Date: 20200409
  Serious: Yes (Other)
  Sender: FDA-Public Use
  Company Number: DK-ARRAY-2020-07612

PATIENT

DRUGS (2)
  1. MEKTOVI [Suspect]
     Active Substance: BINIMETINIB
     Indication: METASTATIC MALIGNANT MELANOMA
     Dosage: STRENGTH: 15 MG. DOSAGE: NOT PROVIDED (THE PATIENT HAS RECEIVED 3 SERIES)
     Route: 048
     Dates: start: 20191112, end: 20200304
  2. BRAFTOVI [Suspect]
     Active Substance: ENCORAFENIB
     Indication: METASTATIC MALIGNANT MELANOMA
     Dosage: STRENGTH AND DOSAGE: NOT AVAILABLE (THE PATIENT HAS RECEIVED 3 SERIES)
     Route: 048
     Dates: start: 20191112, end: 20200304

REACTIONS (1)
  - Hepatitis [Recovering/Resolving]

NARRATIVE: CASE EVENT DATE: 20200226
